FAERS Safety Report 24849596 (Version 1)
Quarter: 2025Q1

REPORT INFORMATION
  Report Type: Spontaneous
  Country: US (occurrence: US)
  Receive Date: 20250116
  Receipt Date: 20250116
  Transmission Date: 20250408
  Serious: No
  Sender: MYLAN
  Company Number: US-MYLANLABS-2025M1003050

PATIENT
  Sex: Female
  Weight: 63.5 kg

DRUGS (2)
  1. LEVOTHYROXINE SODIUM [Suspect]
     Active Substance: LEVOTHYROXINE SODIUM
     Indication: Hypothyroidism
     Dosage: 100 MICROGRAM, AM (1 PILL MORNING WITH WATER
     Route: 048
     Dates: start: 2010, end: 2024
  2. LEVOTHYROXINE SODIUM [Suspect]
     Active Substance: LEVOTHYROXINE SODIUM
     Route: 065
     Dates: start: 2024

REACTIONS (2)
  - Thyroid hormones increased [Unknown]
  - Recalled product administered [Unknown]

NARRATIVE: CASE EVENT DATE: 20240101
